FAERS Safety Report 6801112-5 (Version None)
Quarter: 2010Q2

REPORT INFORMATION
  Report Type: 
  Country: None (occurrence: None)
  Receive Date: 20100624
  Receipt Date: 20100527
  Transmission Date: 20101027
  Serious: Yes (Hospitalization)
  Sender: FDA-Public Use
  Company Number: 012648

PATIENT
  Sex: Female
  Weight: 68 kg

DRUGS (1)
  1. CERTOLIZUMAB PEGOL (CDP870) [Suspect]

REACTIONS (5)
  - C-REACTIVE PROTEIN INCREASED [None]
  - DYSPNOEA [None]
  - HERPES ZOSTER [None]
  - OSTEOPOROSIS [None]
  - RED BLOOD CELL SEDIMENTATION RATE INCREASED [None]
